FAERS Safety Report 13167782 (Version 1)
Quarter: 2017Q1

REPORT INFORMATION
  Report Type: Report from Study
  Country: AU (occurrence: AU)
  Receive Date: 20170131
  Receipt Date: 20170131
  Transmission Date: 20170428
  Serious: Yes (Death)
  Sender: FDA-Public Use
  Company Number: AU-CELGENEUS-AUS-2017016449

PATIENT
  Sex: Male
  Weight: 106 kg

DRUGS (3)
  1. ABRAXANE [Suspect]
     Active Substance: PACLITAXEL
     Indication: OFF LABEL USE
  2. CARBOPLATIN. [Concomitant]
     Active Substance: CARBOPLATIN
     Indication: ADENOID CYSTIC CARCINOMA
     Route: 065
     Dates: end: 201607
  3. ABRAXANE [Suspect]
     Active Substance: PACLITAXEL
     Indication: ADENOID CYSTIC CARCINOMA
     Dosage: 125 MILLIGRAM/SQ. METER
     Route: 041
     Dates: end: 201607

REACTIONS (1)
  - Death [Fatal]
